FAERS Safety Report 9926049 (Version 2)
Quarter: 2014Q1

REPORT INFORMATION
  Report Type: Report from Study
  Country: IT (occurrence: IT)
  Receive Date: 20140226
  Receipt Date: 20140226
  Transmission Date: 20141002
  Serious: Yes (Life-Threatening)
  Sender: FDA-Public Use
  Company Number: PHHY2014IT013711

PATIENT
  Sex: Male
  Weight: 56 kg

DRUGS (1)
  1. CERTICAN [Suspect]
     Indication: IMMUNOSUPPRESSION
     Dosage: 0.5 MG, PER DAY
     Route: 048
     Dates: start: 20061206

REACTIONS (2)
  - Cardiac failure chronic [Recovered/Resolved]
  - Vascular pseudoaneurysm [Recovered/Resolved]
